FAERS Safety Report 19679264 (Version 1)
Quarter: 2021Q3

REPORT INFORMATION
  Report Type: Report from Study
  Country: CA (occurrence: CA)
  Receive Date: 20210810
  Receipt Date: 20210810
  Transmission Date: 20211014
  Serious: Yes (Other)
  Sender: FDA-Public Use
  Company Number: CA-BEH-2021134501

PATIENT
  Age: 42 Year
  Sex: Male
  Weight: 65 kg

DRUGS (1)
  1. HAEGARDA [Suspect]
     Active Substance: HUMAN C1-ESTERASE INHIBITOR
     Indication: PRODUCT USED FOR UNKNOWN INDICATION
     Route: 065

REACTIONS (3)
  - Swelling face [Unknown]
  - Unevaluable event [Unknown]
  - Abdominal pain [Unknown]

NARRATIVE: CASE EVENT DATE: 202101
